FAERS Safety Report 19171477 (Version 1)
Quarter: 2021Q2

REPORT INFORMATION
  Report Type: Spontaneous
  Country: ES (occurrence: ES)
  Receive Date: 20210423
  Receipt Date: 20210423
  Transmission Date: 20210717
  Serious: Yes (Hospitalization)
  Sender: FDA-Public Use
  Company Number: ES-B.I. PHARMACEUTICALS,INC./RIDGEFIELD-2021-BI-097921

PATIENT
  Age: 85 Year
  Sex: Male

DRUGS (4)
  1. PRAVASTATINA AUROVISTAS [Concomitant]
     Indication: DYSLIPIDAEMIA
     Dosage: 1 EVERY 24 HOURS
     Route: 048
     Dates: start: 20190527
  2. JENTADUETO [Suspect]
     Active Substance: LINAGLIPTIN\METFORMIN HYDROCHLORIDE
     Indication: DIABETES MELLITUS
     Dosage: 1 TABLET EVERY 12 HOURS
     Route: 048
     Dates: start: 20160317, end: 20210402
  3. LISINOPRIL. [Concomitant]
     Active Substance: LISINOPRIL
     Indication: HYPERTENSION
     Dosage: 1 TABLET ORALLY
     Route: 048
     Dates: start: 20190704
  4. FENOFIBRATO KERN PHARMA [Concomitant]
     Active Substance: FENOFIBRATE
     Indication: DYSLIPIDAEMIA
     Dosage: 0,5 EVERY 24 HOURS
     Route: 048
     Dates: start: 20180618

REACTIONS (3)
  - Vitamin B12 deficiency [Recovering/Resolving]
  - Anaemia macrocytic [Recovering/Resolving]
  - Confusional state [Recovering/Resolving]

NARRATIVE: CASE EVENT DATE: 20210402
